FAERS Safety Report 7100357-7 (Version None)
Quarter: 2010Q4

REPORT INFORMATION
  Report Type: 
  Country: None (occurrence: None)
  Receive Date: 20101112
  Receipt Date: 20101109
  Transmission Date: 20110411
  Serious: Yes (Hospitalization, Other)
  Sender: FDA-Public Use
  Company Number: US-MERCK-1001USA03813

PATIENT
  Age: 75 Year
  Sex: Female
  Weight: 58 kg

DRUGS (2)
  1. FOSAMAX [Suspect]
     Indication: OSTEOPOROSIS
     Route: 048
     Dates: start: 19950101, end: 20090901
  2. FOSAMAX [Suspect]
     Route: 048
     Dates: start: 19970101

REACTIONS (87)
  - ABDOMINAL DISCOMFORT [None]
  - ABDOMINAL PAIN [None]
  - ABSCESS [None]
  - ADVERSE DRUG REACTION [None]
  - ANASTOMOTIC ULCER [None]
  - ANXIETY [None]
  - AORTIC ARTERIOSCLEROSIS [None]
  - ARTHRALGIA [None]
  - ARTHRITIS [None]
  - ASTHENIA [None]
  - BACK PAIN [None]
  - BASEDOW'S DISEASE [None]
  - BLOOD CHOLESTEROL INCREASED [None]
  - BLOOD COUNT ABNORMAL [None]
  - BLOOD PRESSURE INCREASED [None]
  - BODY HEIGHT DECREASED [None]
  - BONE PAIN [None]
  - BRADYCARDIA [None]
  - BREAST CANCER [None]
  - BREAST CYST [None]
  - CATARACT [None]
  - CHEST PAIN [None]
  - CHRONIC OBSTRUCTIVE PULMONARY DISEASE [None]
  - CONSTIPATION [None]
  - CONTUSION [None]
  - COUGH [None]
  - DEAFNESS [None]
  - DENTAL CARIES [None]
  - DENTAL NECROSIS [None]
  - DEPRESSION [None]
  - DIARRHOEA [None]
  - DIASTOLIC DYSFUNCTION [None]
  - DIVERTICULUM [None]
  - DIZZINESS POSTURAL [None]
  - FALL [None]
  - FATIGUE [None]
  - GALLBLADDER PAIN [None]
  - GASTRITIS [None]
  - GLOBULIN ABNORMAL [None]
  - HAEMORRHAGE SUBCUTANEOUS [None]
  - HAEMORRHOIDS [None]
  - HERPES ZOSTER [None]
  - HIATUS HERNIA [None]
  - HYPERTHYROIDISM [None]
  - HYPOTHYROIDISM [None]
  - IMPAIRED HEALING [None]
  - INFLAMMATION [None]
  - INSOMNIA [None]
  - INTERSTITIAL LUNG DISEASE [None]
  - INTERVERTEBRAL DISC DEGENERATION [None]
  - MITRAL VALVE SCLEROSIS [None]
  - MUSCLE SPASMS [None]
  - NAUSEA [None]
  - NECK PAIN [None]
  - NOCTURIA [None]
  - NODULE [None]
  - OCCULT BLOOD NEGATIVE [None]
  - ORAL INFECTION [None]
  - ORAL TORUS [None]
  - OSTEONECROSIS OF JAW [None]
  - PAIN IN JAW [None]
  - PLEURISY [None]
  - POSTMENOPAUSE [None]
  - PRECANCEROUS SKIN LESION [None]
  - PULMONARY VALVE INCOMPETENCE [None]
  - PYELONEPHRITIS [None]
  - RASH ERYTHEMATOUS [None]
  - RENAL ATROPHY [None]
  - RENAL FAILURE [None]
  - RESTRICTIVE PULMONARY DISEASE [None]
  - RETINAL HAEMORRHAGE [None]
  - RIGHT VENTRICULAR SYSTOLIC PRESSURE INCREASED [None]
  - SCAR [None]
  - SCOLIOSIS [None]
  - SEBORRHOEIC KERATOSIS [None]
  - SKIN CANCER [None]
  - SPINAL COLUMN STENOSIS [None]
  - SPINAL DEFORMITY [None]
  - SPONDYLOLISTHESIS [None]
  - STRESS URINARY INCONTINENCE [None]
  - TEARFULNESS [None]
  - TOOTH FRACTURE [None]
  - TRICUSPID VALVE INCOMPETENCE [None]
  - UTERINE DISORDER [None]
  - UTERINE LEIOMYOMA [None]
  - VOMITING [None]
  - WEIGHT DECREASED [None]
